FAERS Safety Report 6758957-X (Version None)
Quarter: 2010Q2

REPORT INFORMATION
  Report Type: 
  Country: None (occurrence: None)
  Receive Date: 20100603
  Receipt Date: 20100518
  Transmission Date: 20101027
  Serious: Yes (Hospitalization, Other)
  Sender: FDA-Public Use
  Company Number: DSA_43037_2010

PATIENT
  Age: 68 Year
  Sex: Female

DRUGS (3)
  1. HERBESSER R (HERBESSER R - DILTIAZEM HYDROCHLORIDE) 100MG (NOT SPECIFI [Suspect]
     Indication: HYPERTENSION
     Dosage: 100MG ORAL
     Route: 048
  2. VALSARTAN [Suspect]
     Indication: HYPERTENSION
     Dosage: 80MG, ORAL
     Route: 048
  3. BAYASPIRIN [Concomitant]

REACTIONS (10)
  - ANURIA [None]
  - CARDIO-RESPIRATORY ARREST [None]
  - CONVULSION [None]
  - DEVICE RELATED INFECTION [None]
  - FALL [None]
  - FLUID OVERLOAD [None]
  - HYPOKALAEMIA [None]
  - OVERDOSE [None]
  - SEPSIS [None]
  - SHOCK [None]
